FAERS Safety Report 8014849-X (Version None)
Quarter: 2011Q4

REPORT INFORMATION
  Report Type: 
  Country: None (occurrence: None)
  Receive Date: 20111229
  Receipt Date: 20111226
  Transmission Date: 20120403
  Serious: Yes (Hospitalization)
  Sender: FDA-Public Use
  Company Number: US-GILEAD-2011-0048052

PATIENT
  Age: 68 Year
  Sex: Female

DRUGS (1)
  1. LETAIRIS [Suspect]
     Indication: PRODUCT USED FOR UNKNOWN INDICATION
     Dosage: 10 MG,
     Route: 048
     Dates: start: 20111202

REACTIONS (7)
  - UNEVALUABLE EVENT [None]
  - OEDEMA PERIPHERAL [None]
  - DYSPNOEA [None]
  - DEAFNESS UNILATERAL [None]
  - HEART RATE INCREASED [None]
  - FLUSHING [None]
  - BLOOD PRESSURE DECREASED [None]
